FAERS Safety Report 21558937 (Version 1)
Quarter: 2022Q4

REPORT INFORMATION
  Report Type: Spontaneous
  Country: US (occurrence: None)
  Receive Date: 20221104
  Receipt Date: 20221104
  Transmission Date: 20230113
  Serious: Yes (Death)
  Sender: FDA-Public Use
  Company Number: None

PATIENT
  Age: 38 Year
  Sex: Female
  Weight: 71.89 kg

DRUGS (5)
  1. KISQALI [Suspect]
     Active Substance: RIBOCICLIB
     Dosage: OTHER FREQUENCY : 21DOF28DAYS;?
     Route: 048
  2. EFFEXOR [Concomitant]
  3. LEVOTHYROXINE [Concomitant]
  4. ZOFRAN [Concomitant]
  5. ZYRTEC [Concomitant]

REACTIONS (1)
  - Death [None]
